FAERS Safety Report 4366894-3 (Version None)
Quarter: 2004Q2

REPORT INFORMATION
  Report Type: 
  Country: None (occurrence: None)
  Receive Date: 20040524
  Receipt Date: 20040517
  Transmission Date: 20050107
  Serious: No
  Sender: FDA-Public Use
  Company Number: TPA2004A00550

PATIENT
  Sex: Female

DRUGS (2)
  1. ACTOS [Suspect]
     Dosage: 45 MG, 1 IN 1 D, PER ORAL
     Route: 048
  2. METFORMIN HCL [Concomitant]

REACTIONS (3)
  - DYSPNOEA [None]
  - PLEURAL EFFUSION [None]
  - TUBERCULIN TEST POSITIVE [None]
